FAERS Safety Report 9425483 (Version 1)
Quarter: 2013Q3

REPORT INFORMATION
  Report Type: Other
  Country: GB (occurrence: GB)
  Receive Date: 20130729
  Receipt Date: 20130729
  Transmission Date: 20140515
  Serious: Yes (Other)
  Sender: FDA-Public Use
  Company Number: GB-PERRIGO-13GB007526

PATIENT
  Age: 29 Year
  Sex: Male
  Weight: 113 kg

DRUGS (2)
  1. LORATADINE 16028/0081 10 MG [Suspect]
     Indication: PRODUCT USED FOR UNKNOWN INDICATION
     Dosage: UNK
     Route: 065
     Dates: start: 20130626, end: 20130703
  2. CETRIZINE [Concomitant]
     Indication: PRODUCT USED FOR UNKNOWN INDICATION
     Dosage: UNK
     Route: 065

REACTIONS (2)
  - Presyncope [Recovered/Resolved]
  - Dizziness [Recovered/Resolved]
